FAERS Safety Report 5067795-8 (Version None)
Quarter: 2006Q3

REPORT INFORMATION
  Report Type: 
  Country: None (occurrence: None)
  Receive Date: 20060802
  Receipt Date: 20060712
  Transmission Date: 20061208
  Serious: Yes (Life-Threatening, Hospitalization)
  Sender: FDA-Public Use
  Company Number: JP-JPN-A200602607

PATIENT
  Age: 33 Year
  Sex: Female
  Weight: 42 kg

DRUGS (2)
  1. PAXIL [Suspect]
     Indication: OBSESSIVE-COMPULSIVE DISORDER
     Dosage: 10MG PER DAY
     Route: 048
     Dates: start: 20060628, end: 20060628
  2. ZYPREXA [Concomitant]
     Indication: SCHIZOPHRENIA
     Dosage: 20MG PER DAY
     Route: 048
     Dates: start: 20060328, end: 20060628

REACTIONS (6)
  - BLOOD CREATINE PHOSPHOKINASE INCREASED [None]
  - BLOOD SODIUM INCREASED [None]
  - FOAMING AT MOUTH [None]
  - HYPONATRAEMIA [None]
  - SPEECH DISORDER [None]
  - VOMITING [None]
